FAERS Safety Report 4480207-8 (Version None)
Quarter: 2004Q4

REPORT INFORMATION
  Report Type: 
  Country: None (occurrence: None)
  Receive Date: 20041020
  Receipt Date: 20041011
  Transmission Date: 20050328
  Serious: Yes (Hospitalization)
  Sender: FDA-Public Use
  Company Number: PHRM2004FR03094

PATIENT
  Age: 83 Year
  Sex: Male

DRUGS (5)
  1. TEGRETOL [Suspect]
     Dosage: UNK, UNK
     Route: 048
  2. TOPALGIC [Suspect]
     Indication: PAIN
     Dosage: 1 DF, BID
     Route: 048
     Dates: start: 20040102
  3. FONZYLANE [Suspect]
     Route: 048
  4. COZAAR [Suspect]
     Dosage: 50 MG, QD
     Route: 048
     Dates: start: 20040101
  5. RISPERDAL [Suspect]
     Route: 048

REACTIONS (4)
  - BUNDLE BRANCH BLOCK RIGHT [None]
  - DISORIENTATION [None]
  - ORTHOSTATIC HYPOTENSION [None]
  - SYNCOPE VASOVAGAL [None]
